FAERS Safety Report 6483434-3 (Version None)
Quarter: 2009Q4

REPORT INFORMATION
  Report Type: 
  Country: None (occurrence: None)
  Receive Date: 20091209
  Receipt Date: 20091208
  Transmission Date: 20100525
  Serious: Yes (Death)
  Sender: FDA-Public Use
  Company Number: US-PFIZER INC-2009278224

PATIENT
  Age: 74 Year
  Sex: Male

DRUGS (3)
  1. XALATAN [Suspect]
     Indication: GLAUCOMA
     Dosage: UNK
  2. ALPHAGAN [Concomitant]
  3. ZOCOR [Concomitant]
     Indication: CEREBROVASCULAR ACCIDENT

REACTIONS (1)
  - DEATH [None]
